FAERS Safety Report 21454386 (Version 4)
Quarter: 2023Q1

REPORT INFORMATION
  Report Type: Report from Study
  Country: CA (occurrence: CA)
  Receive Date: 20221013
  Receipt Date: 20230131
  Transmission Date: 20230417
  Serious: Yes (Death, Hospitalization)
  Sender: FDA-Public Use
  Company Number: CA-JNJFOC-20221021836

PATIENT
  Age: 82 Year
  Sex: Male

DRUGS (2)
  1. APALUTAMIDE [Suspect]
     Active Substance: APALUTAMIDE
     Indication: Prostate cancer stage 0
     Route: 048
     Dates: start: 20211119
  2. APALUTAMIDE [Suspect]
     Active Substance: APALUTAMIDE
     Route: 048

REACTIONS (2)
  - Death [Fatal]
  - Gastrointestinal ulcer haemorrhage [Not Recovered/Not Resolved]

NARRATIVE: CASE EVENT DATE: 20221009
